FAERS Safety Report 19328852 (Version 1)
Quarter: 2021Q2

REPORT INFORMATION
  Report Type: Spontaneous
  Country: PT (occurrence: PT)
  Receive Date: 20210528
  Receipt Date: 20210528
  Transmission Date: 20210717
  Serious: Yes (Hospitalization, Other)
  Sender: FDA-Public Use
  Company Number: PT-AMGEN-PRTSP2019083739

PATIENT
  Age: 60 Year
  Sex: Female

DRUGS (30)
  1. TRASTUZUMAB. [Suspect]
     Active Substance: TRASTUZUMAB
     Indication: HER2 POSITIVE BREAST CANCER
     Dosage: 8 MILLIGRAM/KILOGRAM, Q3WK
     Route: 042
     Dates: start: 20140130
  2. CORDARONE [Concomitant]
     Active Substance: AMIODARONE HYDROCHLORIDE
     Dosage: 100 MILLIGRAM
     Route: 065
     Dates: start: 20170409
  3. BISOPROLOL [Concomitant]
     Active Substance: BISOPROLOL
     Dosage: 1.25 MILLIGRAM
     Dates: start: 20190314, end: 20190417
  4. TRASTUZUMAB. [Suspect]
     Active Substance: TRASTUZUMAB
     Dosage: 588 MILLIGRAM, Q3WK
     Route: 042
  5. DICLOFENAC [Concomitant]
     Active Substance: DICLOFENAC
     Dosage: 50 MILLIGRAM
     Route: 065
     Dates: start: 20181225
  6. FURADANTINE MC [Concomitant]
     Dosage: 100 MILLIGRAM
     Route: 065
     Dates: start: 20181231
  7. ATORVASTATIN [Concomitant]
     Active Substance: ATORVASTATIN
     Dosage: 10 MILLIGRAM
     Route: 065
     Dates: start: 2007
  8. AMLODIPINE [Concomitant]
     Active Substance: AMLODIPINE BESYLATE
     Dosage: 10 MILLIGRAM
     Route: 065
     Dates: start: 201807
  9. METOCLOPRAMIDE. [Concomitant]
     Active Substance: METOCLOPRAMIDE
     Dosage: 10 MILLIGRAM
     Route: 065
     Dates: start: 20140423, end: 20140514
  10. PARACETAMOL [Concomitant]
     Active Substance: ACETAMINOPHEN
     Dosage: 1 GRAM
     Route: 065
     Dates: start: 20140416
  11. BRUFEN [IBUPROFEN] [Concomitant]
     Active Substance: IBUPROFEN
     Dosage: 1200 MILLIGRAM
     Route: 065
     Dates: start: 20170829
  12. PERTUZUMAB. [Concomitant]
     Active Substance: PERTUZUMAB
     Dosage: 420 MILLIGRAM, Q3WK
     Route: 042
  13. BISOPROLOL [Concomitant]
     Active Substance: BISOPROLOL
     Dosage: 5 MILLIGRAM
     Dates: start: 20190222, end: 20190314
  14. PERTUZUMAB. [Concomitant]
     Active Substance: PERTUZUMAB
     Indication: HER2 POSITIVE BREAST CANCER
     Dosage: 840 MILLIGRAM, Q3WK
     Route: 042
     Dates: start: 20140129
  15. ZOLEDRONIC ACID [Concomitant]
     Active Substance: ZOLEDRONIC ACID
     Dosage: 4 MILLIGRAM, Q3MO
     Route: 065
     Dates: start: 20160317
  16. METOCLOPRAMIDE. [Concomitant]
     Active Substance: METOCLOPRAMIDE
     Dosage: 10 MILLIGRAM
     Route: 065
     Dates: start: 20150513
  17. PARACETAMOL [Concomitant]
     Active Substance: ACETAMINOPHEN
     Indication: PAIN
     Dosage: 1 GRAM
     Route: 065
     Dates: start: 20140219, end: 20140423
  18. OMEPRAZOLE. [Concomitant]
     Active Substance: OMEPRAZOLE
     Dosage: 20 MILLIGRAM
     Route: 065
     Dates: start: 20150513
  19. APIXABAN [Concomitant]
     Active Substance: APIXABAN
     Dosage: 10 MILLIGRAM
     Dates: start: 20190222
  20. EUTHYROX [Concomitant]
     Active Substance: LEVOTHYROXINE SODIUM
     Dosage: 75 MICROGRAM
     Route: 065
     Dates: start: 20170530
  21. PARACETAMOL [Concomitant]
     Active Substance: ACETAMINOPHEN
     Dosage: 1500 MILLIGRAM
     Route: 065
     Dates: start: 20181217, end: 20181222
  22. LISINOPRIL HIDROCLOROTIAZIDA [Concomitant]
     Active Substance: HYDROCHLOROTHIAZIDE\LISINOPRIL
     Dosage: UNK
     Route: 065
     Dates: start: 2007, end: 201705
  23. PARACETAMOL [Concomitant]
     Active Substance: ACETAMINOPHEN
     Dosage: 1 GRAM
     Route: 065
     Dates: start: 20170827, end: 20170828
  24. CORDARONE [Concomitant]
     Active Substance: AMIODARONE HYDROCHLORIDE
     Dosage: 200 MILLIGRAM
     Route: 065
     Dates: start: 2013, end: 20170409
  25. ZOLEDRONIC ACID [Concomitant]
     Active Substance: ZOLEDRONIC ACID
     Indication: METASTASES TO BONE
     Dosage: 4 MILLIGRAM, QMO
     Route: 065
     Dates: start: 20140403, end: 20151217
  26. DICLOFENAC [Concomitant]
     Active Substance: DICLOFENAC
     Dosage: 100 MILLIGRAM
     Route: 065
     Dates: start: 2013
  27. LISINOPRIL HIDROCLOROTIAZIDA [Concomitant]
     Active Substance: HYDROCHLOROTHIAZIDE\LISINOPRIL
     Dosage: 10+6.25 MG
     Route: 065
     Dates: start: 2013, end: 20170509
  28. ALPRAZOLAM. [Concomitant]
     Active Substance: ALPRAZOLAM
     Dosage: 1 MILLIGRAM
     Route: 065
     Dates: start: 2007
  29. PERINDOPRIL [Concomitant]
     Active Substance: PERINDOPRIL
     Dosage: 5 MILLIGRAM
     Route: 065
     Dates: start: 201808
  30. BISOPROLOL [Concomitant]
     Active Substance: BISOPROLOL
     Dosage: 1.25 MILLIGRAM
     Dates: start: 20190221, end: 20190221

REACTIONS (2)
  - Atrial fibrillation [Recovered/Resolved]
  - Off label use [Unknown]

NARRATIVE: CASE EVENT DATE: 20190216
